FAERS Safety Report 6911333-9 (Version None)
Quarter: 2010Q3

REPORT INFORMATION
  Report Type: 
  Country: None (occurrence: None)
  Receive Date: 20100806
  Receipt Date: 20100727
  Transmission Date: 20110219
  Serious: Yes (Hospitalization)
  Sender: FDA-Public Use
  Company Number: ES-BRISTOL-MYERS SQUIBB COMPANY-14773147

PATIENT
  Age: 56 Year
  Sex: Female
  Weight: 69 kg

DRUGS (9)
  1. CETUXIMAB [Suspect]
     Indication: NON-SMALL CELL LUNG CANCER
     Dosage: LAST DOSE: 24AUG09
     Route: 042
     Dates: start: 20090713, end: 20090907
  2. CISPLATIN [Suspect]
     Indication: NON-SMALL CELL LUNG CANCER
     Dosage: LAST DOSE: 24AUG09 EVERY 21 DAYS
     Route: 042
     Dates: start: 20090713, end: 20090907
  3. PEMETREXED DISODIUM [Suspect]
     Indication: NON-SMALL CELL LUNG CANCER
     Dosage: LAST DOSE: 24AUG09 EVERY 21 DAYS
     Route: 042
     Dates: start: 20090713, end: 20090907
  4. LOSARTAN [Concomitant]
     Indication: HYPERTENSION
  5. HYDROCHLOROTHIAZIDE [Concomitant]
     Indication: HYPERTENSION
  6. AMLODIPINE [Concomitant]
     Indication: HYPERTENSION
  7. FOLIC ACID [Concomitant]
     Dates: start: 20090629
  8. VITAMIN B-12 [Concomitant]
     Dates: start: 20090629, end: 20090831
  9. DEXAMETHASONE [Concomitant]
     Dates: start: 20090823, end: 20090825

REACTIONS (1)
  - PULMONARY EMBOLISM [None]
